FAERS Safety Report 23524980 (Version 1)
Quarter: 2024Q1

REPORT INFORMATION
  Report Type: Spontaneous
  Country: ES (occurrence: ES)
  Receive Date: 20240215
  Receipt Date: 20240215
  Transmission Date: 20240410
  Serious: Yes (Hospitalization)
  Sender: FDA-Public Use
  Company Number: ES-NOVOPROD-1173834

PATIENT
  Sex: Male

DRUGS (2)
  1. FIASP [Suspect]
     Active Substance: INSULIN ASPART
     Indication: Product used for unknown indication
     Dosage: MULTIPLE DOSES
     Route: 058
  2. FIASP [Suspect]
     Active Substance: INSULIN ASPART
     Dosage: UNK(FIASP FLEXTOUCH FROM A DIFFERENT BATCH)

REACTIONS (3)
  - Ketoacidosis [Unknown]
  - Drug ineffective [Unknown]
  - Intentional product misuse to child [Unknown]
